FAERS Safety Report 5995747-X (Version None)
Quarter: 2008Q4

REPORT INFORMATION
  Report Type: 
  Country: None (occurrence: None)
  Receive Date: 20081212
  Receipt Date: 20081203
  Transmission Date: 20090506
  Serious: Yes (Life-Threatening, Hospitalization, Other)
  Sender: FDA-Public Use
  Company Number: BR-PFIZER INC-2008091987

PATIENT

DRUGS (5)
  1. MARAVIROC [Suspect]
     Indication: HIV INFECTION
     Dosage: 150 MG, 2X/DAY
     Dates: start: 20080815, end: 20081030
  2. TENOFOVIR [Concomitant]
     Route: 048
     Dates: start: 20080710
  3. LAMIVUDINE [Concomitant]
     Route: 048
     Dates: start: 20040428
  4. ATAZANAVIR SULFATE [Concomitant]
     Route: 048
     Dates: start: 20080710
  5. RITONAVIR [Concomitant]
     Route: 048
     Dates: start: 20080710

REACTIONS (4)
  - BLOOD BILIRUBIN INCREASED [None]
  - DYSPNOEA [None]
  - HYPOXIA [None]
  - NEUTROPENIA [None]
